FAERS Safety Report 4289911-8 (Version None)
Quarter: 2004Q1

REPORT INFORMATION
  Report Type: 
  Country: None (occurrence: None)
  Receive Date: 20040205
  Receipt Date: 20040126
  Transmission Date: 20041129
  Serious: Yes (Hospitalization)
  Sender: FDA-Public Use
  Company Number: JP-JNJFOC-20040105346

PATIENT
  Age: 65 Year
  Sex: Male

DRUGS (1)
  1. VASCOR [Suspect]
     Indication: ATRIAL FIBRILLATION
     Dosage: ORAL
     Route: 048
     Dates: start: 20020424

REACTIONS (2)
  - LYMPHOCYTE STIMULATION TEST POSITIVE [None]
  - PNEUMONITIS [None]
